FAERS Safety Report 5751312-0 (Version None)
Quarter: 2008Q2

REPORT INFORMATION
  Report Type: 
  Country: None (occurrence: None)
  Receive Date: 20080528
  Receipt Date: 20080519
  Transmission Date: 20081010
  Serious: Yes (Other)
  Sender: FDA-Public Use
  Company Number: US-PFIZER INC-2008042956

PATIENT
  Age: 35 Year
  Sex: Male
  Weight: 122.5 kg

DRUGS (7)
  1. DOXEPIN HCL [Suspect]
     Indication: DEPRESSION
     Route: 048
  2. FINASTERIDE [Suspect]
     Route: 048
  3. TESTOSTERONE [Suspect]
  4. PROVIGIL [Suspect]
     Route: 048
  5. PAXIL [Suspect]
     Indication: DEPRESSION
     Route: 048
  6. CONCERTA [Suspect]
     Route: 048
  7. RITALIN [Suspect]

REACTIONS (5)
  - AGGRESSION [None]
  - CHILD ABUSE [None]
  - HOMICIDE [None]
  - LOSS OF CONSCIOUSNESS [None]
  - TREMOR [None]
